FAERS Safety Report 7255900-4 (Version None)
Quarter: 2011Q1

REPORT INFORMATION
  Report Type: 
  Country: None (occurrence: None)
  Receive Date: 20110129
  Receipt Date: 20100507
  Transmission Date: 20110831
  Serious: No
  Sender: FDA-Public Use
  Company Number: US-ABBOTT-10P-163-0643602-00

PATIENT
  Sex: Female
  Weight: 82.628 kg

DRUGS (7)
  1. BENACAR [Concomitant]
     Indication: HYPERTENSION
     Dosage: 40MG/25MG DAILY
  2. LEFLUNOMIDE [Concomitant]
     Indication: PSORIASIS
  3. HUMIRA [Suspect]
     Indication: ANKYLOSING SPONDYLITIS
     Route: 058
     Dates: start: 20091101, end: 20091201
  4. HUMIRA [Suspect]
     Indication: OSTEOARTHRITIS
  5. HUMIRA [Suspect]
     Indication: PSORIATIC ARTHROPATHY
     Route: 058
     Dates: start: 20091201
  6. METFORMIN [Concomitant]
     Indication: DIABETES MELLITUS
  7. HUMIRA [Suspect]
     Indication: RHEUMATOID ARTHRITIS

REACTIONS (2)
  - ARTHRALGIA [None]
  - DRUG INEFFECTIVE [None]
